FAERS Safety Report 9126106 (Version 1)
Quarter: 2013Q1

REPORT INFORMATION
  Report Type: Spontaneous
  Country: US (occurrence: US)
  Receive Date: 20130117
  Receipt Date: 20130117
  Transmission Date: 20140127
  Serious: No
  Sender: FDA-Public Use
  Company Number: US-BAYER-2013-006125

PATIENT
  Age: 89 Year
  Sex: Female

DRUGS (1)
  1. CIPRO [Suspect]
     Indication: URINARY TRACT INFECTION
     Dosage: 250 MG, BID
     Dates: start: 201301

REACTIONS (1)
  - Hypertension [Not Recovered/Not Resolved]
